FAERS Safety Report 6152697-6 (Version None)
Quarter: 2009Q2

REPORT INFORMATION
  Report Type: 
  Country: None (occurrence: None)
  Receive Date: 20090413
  Receipt Date: 20090403
  Transmission Date: 20091009
  Serious: Yes (Other)
  Sender: FDA-Public Use
  Company Number: US-BIOGENIDEC-2009BI006035

PATIENT
  Age: 49 Year
  Sex: Female

DRUGS (8)
  1. TYSABRI [Suspect]
     Indication: MULTIPLE SCLEROSIS
     Route: 042
     Dates: start: 20060914, end: 20090113
  2. GABAPENTIN [Concomitant]
  3. BACLOFEN [Concomitant]
  4. CYMBALTA [Concomitant]
  5. TRAZODONE HCL [Concomitant]
  6. DETROL [Concomitant]
  7. RITALIN [Concomitant]
  8. LIPITOR [Concomitant]

REACTIONS (1)
  - HEPATITIS TOXIC [None]
